FAERS Safety Report 5089698-5 (Version None)
Quarter: 2006Q3

REPORT INFORMATION
  Report Type: 
  Country: None (occurrence: None)
  Receive Date: 20060828
  Receipt Date: 20060823
  Transmission Date: 20061208
  Serious: Yes (Other)
  Sender: FDA-Public Use
  Company Number: US-JNJFOC-20060805410

PATIENT
  Sex: Female
  Weight: 107.05 kg

DRUGS (9)
  1. REMICADE [Suspect]
     Indication: PSORIATIC ARTHROPATHY
     Route: 042
  2. REMICADE [Suspect]
     Indication: RHEUMATOID ARTHRITIS
     Route: 042
  3. DIOVAN [Concomitant]
     Indication: HYPERTENSION
  4. NORVASC [Concomitant]
  5. METHOTREXATE [Concomitant]
     Indication: RHEUMATOID ARTHRITIS
  6. FOLIC ACID [Concomitant]
  7. DYAZIDE [Concomitant]
     Indication: DIURETIC THERAPY
  8. VOLTARIN [Concomitant]
     Indication: PAIN
  9. LORTAB [Concomitant]
     Indication: PAIN

REACTIONS (1)
  - UPPER LIMB FRACTURE [None]
